FAERS Safety Report 5072708-9 (Version None)
Quarter: 2006Q3

REPORT INFORMATION
  Report Type: 
  Country: None (occurrence: None)
  Receive Date: 20060801
  Receipt Date: 20060721
  Transmission Date: 20061208
  Serious: Yes (Death)
  Sender: FDA-Public Use
  Company Number: 2006AL001850

PATIENT
  Age: 21 Month
  Sex: Female

DRUGS (1)
  1. PROMETH VC W/CODEINE COUGH SYRUP [Suspect]
     Indication: COUGH
     Dosage: HS, ORAL
     Route: 048
     Dates: start: 20031219, end: 20040131

REACTIONS (3)
  - CONJUNCTIVITIS [None]
  - COUGH [None]
  - UNEVALUABLE EVENT [None]
